FAERS Safety Report 5261187-4 (Version None)
Quarter: 2007Q1

REPORT INFORMATION
  Report Type: 
  Country: None (occurrence: None)
  Receive Date: 20070309
  Receipt Date: 20070228
  Transmission Date: 20070707
  Serious: Yes (Other)
  Sender: FDA-Public Use
  Company Number: US-PFIZER INC-2007011992

PATIENT
  Sex: Female

DRUGS (5)
  1. CHANTIX [Suspect]
     Dates: start: 20070208, end: 20070224
  2. ALL OTHER THERAPEUTIC PRODUCTS [Concomitant]
     Indication: SLEEP DISORDER
  3. TOPAMAX [Concomitant]
     Indication: MIGRAINE
  4. ADVAIR DISKUS 100/50 [Concomitant]
     Indication: ASTHMA
  5. SINGULAIR [Concomitant]
     Indication: ASTHMA

REACTIONS (10)
  - APHASIA [None]
  - COUGH [None]
  - FATIGUE [None]
  - HEADACHE [None]
  - HYPOAESTHESIA [None]
  - INCREASED UPPER AIRWAY SECRETION [None]
  - INSOMNIA [None]
  - MIGRAINE [None]
  - NASOPHARYNGITIS [None]
  - RESPIRATORY TRACT CONGESTION [None]
